FAERS Safety Report 11707329 (Version 2)
Quarter: 2015Q4

REPORT INFORMATION
  Report Type: Report from Study
  Country: US (occurrence: US)
  Receive Date: 20151106
  Receipt Date: 20151125
  Transmission Date: 20160304
  Serious: Yes (Hospitalization, Other)
  Sender: FDA-Public Use
  Company Number: PHHO2015US018328

PATIENT
  Age: 61 Year
  Sex: Female
  Weight: 50.9 kg

DRUGS (7)
  1. SORAFENIB [Suspect]
     Active Substance: SORAFENIB
     Indication: ACUTE MYELOID LEUKAEMIA
     Dosage: UNK
     Route: 048
     Dates: start: 20151022
  2. SORAFENIB [Suspect]
     Active Substance: SORAFENIB
     Dosage: 400 MG, BID
     Route: 048
     Dates: start: 20151026
  3. BLINDED NO TREATMENT RECEIVED [Suspect]
     Active Substance: INVESTIGATIONAL PRODUCT
     Indication: CYTOMEGALOVIRUS INFECTION
     Dosage: LJP538 (50MG/KG): 2745MG AND LJP539 (5MG/KG): 275MG, MONTHLY
     Route: 042
     Dates: start: 20150713, end: 20151006
  4. AZACITIDINE. [Suspect]
     Active Substance: AZACITIDINE
     Indication: ACUTE MYELOID LEUKAEMIA
     Dosage: 122 MG (DAY 1 TO 7)
     Route: 042
     Dates: start: 20151026
  5. ENOXAPARIN [Suspect]
     Active Substance: ENOXAPARIN
     Indication: EMBOLISM VENOUS
     Route: 065
  6. BLINDED CSJ148 [Suspect]
     Active Substance: INVESTIGATIONAL PRODUCT
     Indication: CYTOMEGALOVIRUS INFECTION
     Dosage: LJP538 (50MG/KG): 2745MG AND LJP539 (5MG/KG): 275MG, MONTHLY
     Route: 042
     Dates: start: 20150713, end: 20151006
  7. BLINDED PLACEBO [Suspect]
     Active Substance: INVESTIGATIONAL PRODUCT
     Indication: CYTOMEGALOVIRUS INFECTION
     Dosage: LJP538 (50MG/KG): 2745MG AND LJP539 (5MG/KG): 275MG, MONTHLY
     Route: 042
     Dates: start: 20150713, end: 20151006

REACTIONS (5)
  - Febrile neutropenia [Recovering/Resolving]
  - Acute myeloid leukaemia [Not Recovered/Not Resolved]
  - Haemoptysis [Not Recovered/Not Resolved]
  - Chest pain [Not Recovered/Not Resolved]
  - Abdominal pain [Not Recovered/Not Resolved]

NARRATIVE: CASE EVENT DATE: 20151019
